FAERS Safety Report 7810701-0 (Version None)
Quarter: 2011Q4

REPORT INFORMATION
  Report Type: 
  Country: None (occurrence: None)
  Receive Date: 20111013
  Receipt Date: 20111007
  Transmission Date: 20120403
  Serious: Yes (Other)
  Sender: FDA-Public Use
  Company Number: DK-BRISTOL-MYERS SQUIBB COMPANY-16143927

PATIENT
  Age: 21 Year
  Sex: Male
  Weight: 62 kg

DRUGS (1)
  1. ABILIFY [Suspect]
     Dates: start: 20110704, end: 20110711

REACTIONS (4)
  - PALPITATIONS [None]
  - PSYCHOMOTOR SKILLS IMPAIRED [None]
  - VIITH NERVE PARALYSIS [None]
  - SALIVARY HYPERSECRETION [None]
